FAERS Safety Report 17593602 (Version 2)
Quarter: 2020Q1

REPORT INFORMATION
  Report Type: Report from Study
  Country: None (occurrence: US)
  Receive Date: 20200328
  Receipt Date: 20200331
  Transmission Date: 20200409
  Serious: Yes (Hospitalization)
  Sender: FDA-Public Use
  Company Number: US-ABBVIE-20K-163-3340651-00

PATIENT
  Sex: Male
  Weight: 79.9 kg

DRUGS (3)
  1. COUMADIN [Concomitant]
     Active Substance: WARFARIN SODIUM
     Indication: PRODUCT USED FOR UNKNOWN INDICATION
  2. VENCLEXTA [Suspect]
     Active Substance: VENETOCLAX
     Indication: CHRONIC LYMPHOCYTIC LEUKAEMIA
     Route: 048
     Dates: start: 201611
  3. VENCLEXTA [Suspect]
     Active Substance: VENETOCLAX
     Indication: CARDIAC FAILURE CONGESTIVE

REACTIONS (3)
  - Discomfort [Unknown]
  - Cardiac failure congestive [Unknown]
  - Breast discomfort [Unknown]

NARRATIVE: CASE EVENT DATE: 2020
